FAERS Safety Report 15098208 (Version 5)
Quarter: 2019Q1

REPORT INFORMATION
  Report Type: Spontaneous
  Country: FR (occurrence: FR)
  Receive Date: 20180702
  Receipt Date: 20190227
  Transmission Date: 20190417
  Serious: Yes (Life-Threatening, Hospitalization)
  Sender: FDA-Public Use
  Company Number: FR-OTSUKA-2018_017192

PATIENT
  Age: 7 Month
  Sex: Female

DRUGS (7)
  1. JINARC [Suspect]
     Active Substance: TOLVAPTAN
     Dosage: 0.5 MG, QD
     Route: 048
  2. RAMIPRIL. [Concomitant]
     Active Substance: RAMIPRIL
     Indication: HYPERTENSION
     Dosage: UNK
     Route: 065
  3. JINARC [Suspect]
     Active Substance: TOLVAPTAN
     Indication: CONGENITAL CYSTIC KIDNEY DISEASE
     Dosage: 1.1 MG, QD
     Route: 048
  4. JINARC [Suspect]
     Active Substance: TOLVAPTAN
     Dosage: 0.8 MG, UNK
     Route: 048
  5. JINARC [Suspect]
     Active Substance: TOLVAPTAN
     Dosage: 1.3 MG, QD
     Route: 065
  6. JINARC [Suspect]
     Active Substance: TOLVAPTAN
     Dosage: 0.9 MG, UNK
     Route: 048
  7. JINARC [Suspect]
     Active Substance: TOLVAPTAN
     Dosage: 1.4 MG, QD
     Route: 048
     Dates: start: 201711

REACTIONS (7)
  - Product use issue [Unknown]
  - Product preparation issue [Unknown]
  - Hypertension [Unknown]
  - Transaminases increased [Not Recovered/Not Resolved]
  - Wrong technique in product usage process [Unknown]
  - Condition aggravated [Recovering/Resolving]
  - Incorrect dose administered [Unknown]

NARRATIVE: CASE EVENT DATE: 20180614
